FAERS Safety Report 16940312 (Version 2)
Quarter: 2020Q2

REPORT INFORMATION
  Report Type: Report from Study
  Country: US (occurrence: US)
  Receive Date: 20191021
  Receipt Date: 20200504
  Transmission Date: 20200713
  Serious: Yes (Other)
  Sender: FDA-Public Use
  Company Number: US-UCBSA-2019043096

PATIENT
  Age: 2 Year
  Sex: Female

DRUGS (23)
  1. BABY ASPIRIN [Concomitant]
     Active Substance: ASPIRIN
     Indication: PREGNANCY
     Dosage: 81 MILLIGRAM, ONCE DAILY (QD)
     Route: 064
     Dates: start: 20160203, end: 20160504
  2. DICLEGIS [Concomitant]
     Active Substance: DOXYLAMINE SUCCINATE\PYRIDOXINE HYDROCHLORIDE
     Indication: NAUSEA
     Dosage: 2 DOSAGE FORM, ONCE DAILY (QD)
     Route: 064
     Dates: start: 20160413, end: 20160525
  3. FOLIC ACID. [Concomitant]
     Active Substance: FOLIC ACID
     Indication: PREGNANCY
  4. PREDNISONE. [Concomitant]
     Active Substance: PREDNISONE
     Indication: RHEUMATOID ARTHRITIS
     Dosage: 5 MILLIGRAM, ONCE DAILY (QD)
     Route: 064
     Dates: start: 20160203, end: 20160810
  5. PREDNISONE. [Concomitant]
     Active Substance: PREDNISONE
     Dosage: 7.5 MILLIGRAM, ONCE DAILY (QD)
     Route: 064
     Dates: start: 20160811, end: 20160831
  6. PRENATAL VITAMINS [MINERALS NOS;VITAMINS NOS] [Concomitant]
     Active Substance: MINERALS\VITAMINS
     Indication: PRODUCT USED FOR UNKNOWN INDICATION
     Dosage: 1 DOSAGE FORM, ONCE DAILY (QD)
     Route: 064
     Dates: start: 20160203, end: 20161103
  7. AMOXICILLIN. [Concomitant]
     Active Substance: AMOXICILLIN
     Indication: SINUSITIS
     Dosage: 825 MILLIGRAM, 2X/DAY (BID)
     Route: 064
     Dates: start: 20160818, end: 20160826
  8. CALCIUM WITH VITAMIN D [CALCIUM CARBONATE;COLECALCIFEROL] [Concomitant]
     Indication: PRODUCT USED FOR UNKNOWN INDICATION
     Dosage: 1 DOSAGE FORM, ONCE DAILY (QD)
     Route: 064
     Dates: start: 20160203, end: 20161103
  9. PLAQUENIL [HYDROXYCHLOROQUINE PHOSPHATE] [Concomitant]
     Active Substance: HYDROXYCHLOROQUINE DIPHOSPHATE
     Indication: RHEUMATOID ARTHRITIS
     Dosage: 200 MILLIGRAM, ONCE DAILY (QD)
     Route: 064
     Dates: start: 20160203, end: 20161103
  10. LEVOTHYROXINE SODIUM. [Concomitant]
     Active Substance: LEVOTHYROXINE SODIUM
     Indication: AUTOIMMUNE THYROIDITIS
     Dosage: 137 MICROGRAM, ONCE DAILY (QD)
     Route: 064
     Dates: start: 20160203, end: 20161103
  11. AMOXICILLIN. [Concomitant]
     Active Substance: AMOXICILLIN
     Indication: PAIN
  12. CEFALEXIN [Concomitant]
     Active Substance: CEPHALEXIN
     Indication: PROPHYLAXIS URINARY TRACT INFECTION
     Dosage: 500 MILLIGRAM, AS NEEDED (PRN)
     Route: 064
     Dates: start: 20160203, end: 20160801
  13. CLARITIN [CLARITHROMYCIN] [Concomitant]
     Active Substance: CLARITHROMYCIN
     Indication: HYPERSENSITIVITY
     Dosage: 1 DOSAGE FORM, ONCE DAILY (QD)
     Route: 064
     Dates: start: 20160203, end: 20161103
  14. CORTISONE [Concomitant]
     Active Substance: CORTISONE
     Indication: RHEUMATOID ARTHRITIS
     Dosage: 1 DOSAGE FORM, ONCE DAILY (QD)
     Route: 064
     Dates: start: 20160701, end: 20160701
  15. DHA [Concomitant]
     Active Substance: DIETARY SUPPLEMENT
     Indication: PRODUCT USED FOR UNKNOWN INDICATION
     Dosage: 400 MILLIGRAM, ONCE DAILY (QD)
     Route: 064
     Dates: start: 20160203, end: 20161103
  16. AMOXICILLIN. [Concomitant]
     Active Substance: AMOXICILLIN
     Indication: DENTAL CARE
     Dosage: 500 MILLIGRAM, 2X/DAY (BID)
     Route: 064
     Dates: start: 20160916, end: 20160925
  17. CORTISONE [Concomitant]
     Active Substance: CORTISONE
     Indication: ARTHRALGIA
     Dosage: 1 DOSAGE FORM, ONCE DAILY (QD)
     Route: 064
     Dates: start: 20160330, end: 20160330
  18. PREDNISONE. [Concomitant]
     Active Substance: PREDNISONE
     Dosage: 8.75 MILLIGRAM, ONCE DAILY (QD)
     Route: 064
     Dates: start: 20160901, end: 20161103
  19. PROGESTERONE. [Concomitant]
     Active Substance: PROGESTERONE
     Indication: UNEVALUABLE EVENT
     Dosage: 100 MILLIGRAM, ONCE DAILY (QD)
     Route: 064
     Dates: start: 20160203, end: 20160504
  20. CERTOLIZUMAB PEGOL RA [Suspect]
     Active Substance: CERTOLIZUMAB PEGOL
     Indication: RHEUMATOID ARTHRITIS
     Dosage: 200 MILLIGRAM TWICE MONTHLY
     Route: 064
     Dates: start: 20140101, end: 20161103
  21. FOLIC ACID. [Concomitant]
     Active Substance: FOLIC ACID
     Indication: RHEUMATOID ARTHRITIS
     Dosage: 3 GRAM, ONCE DAILY (QD)
     Route: 064
     Dates: start: 20160203, end: 20160622
  22. TUMS [Concomitant]
     Active Substance: CALCIUM CARBONATE
     Indication: DYSPEPSIA
     Dosage: 2 DOSAGE FORM, AS NEEDED (PRN)
     Route: 064
     Dates: start: 20160525, end: 20161103
  23. FLUCELVAX NOS [Concomitant]
     Active Substance: INFLUENZA A VIRUS A/BRISBANE/10/2010 (H1N1) ANTIGEN (MDCK CELL DERIVED, PROPIOLACTONE INACTIVATED)\INFLUENZA A VIRUS A/VICTORIA/361/2011 IVR-165 (H3N2) ANTIGEN (MDCK CELL DERIVED, PROPIOLACTONE INACTIVATED)\INFLUENZA B VIRUS B/WISCONSIN/1/2010) ANTIGEN (MDCK CELL DERIVED, PROPIOLACTONE INACTIVATED)
     Indication: PRODUCT USED FOR UNKNOWN INDICATION
     Dosage: 1 DOSAGE FORM, ONCE DAILY (QD)
     Route: 064
     Dates: start: 20161010, end: 20161010

REACTIONS (2)
  - Pneumonia mycoplasmal [Unknown]
  - Maternal exposure before pregnancy [Unknown]

NARRATIVE: CASE EVENT DATE: 20160217
